FAERS Safety Report 18862142 (Version 1)
Quarter: 2021Q1

REPORT INFORMATION
  Report Type: Report from Study
  Country: None (occurrence: US)
  Receive Date: 20210209
  Receipt Date: 20210209
  Transmission Date: 20210420
  Serious: Yes (Other)
  Sender: FDA-Public Use
  Company Number: US-ABBVIE-21K-163-3755895-00

PATIENT
  Age: 60 Year
  Sex: Male
  Weight: 127 kg

DRUGS (22)
  1. VITAMIN B12 [Concomitant]
     Active Substance: CYANOCOBALAMIN
     Indication: PRODUCT USED FOR UNKNOWN INDICATION
     Route: 048
  2. ZYLOPRIM [Concomitant]
     Active Substance: ALLOPURINOL
     Indication: PRODUCT USED FOR UNKNOWN INDICATION
     Dosage: 72 HRS PRIOR TO VENETOCLAX. PATIENT NOT TAKING REPORTED ON 30?NOV?2020
     Route: 048
  3. ZOLOFT [Concomitant]
     Active Substance: SERTRALINE HYDROCHLORIDE
     Indication: PRODUCT USED FOR UNKNOWN INDICATION
     Dosage: MORNING
     Route: 048
  4. DEXAMETHASONE. [Suspect]
     Active Substance: DEXAMETHASONE
     Indication: MANTLE CELL LYMPHOMA
     Route: 065
     Dates: start: 20170425, end: 20170916
  5. NICODERM CQ [Concomitant]
     Active Substance: NICOTINE
     Indication: PRODUCT USED FOR UNKNOWN INDICATION
     Dosage: 21MG/24 HR PATCH?APPLY 1 PATCH TO SKIN AND CHANGE PATCH DAILY
     Route: 062
  6. VENCLEXTA [Suspect]
     Active Substance: VENETOCLAX
     Route: 048
  7. RITUXAN [Suspect]
     Active Substance: RITUXIMAB
     Indication: MANTLE CELL LYMPHOMA
     Dosage: 896MG IN NACL 0.9% (NS) 896ML IVPB (STANDARD INFUSION) IV, 7 OF 7 CYCLES
     Route: 042
     Dates: start: 20170425, end: 20170916
  8. METHOTREXATE. [Suspect]
     Active Substance: METHOTREXATE
     Indication: MANTLE CELL LYMPHOMA
     Dosage: 475MG IN NACL 0.9% (NS) 50ML IVPB, IV 3 OF 3 CYCLES
     Route: 042
     Dates: start: 20170425, end: 20170916
  9. ONCOVIN [Suspect]
     Active Substance: VINCRISTINE SULFATE
     Indication: MANTLE CELL LYMPHOMA
     Dosage: 2MG IN NACL 0.9% (NS) 50ML IVPB, IV 3 OF 3 CYCLES
     Route: 042
     Dates: start: 20170425, end: 20170916
  10. COMBIVENT RESPIMAT [Concomitant]
     Active Substance: ALBUTEROL SULFATE\IPRATROPIUM BROMIDE
     Indication: WHEEZING
     Dosage: 20?100MCG/ ACTUATION INHALER?2 PUFFS BY MOUTH
     Route: 055
  11. CYTOXAN [Suspect]
     Active Substance: CYCLOPHOSPHAMIDE
     Indication: PRODUCT USED FOR UNKNOWN INDICATION
     Dosage: 720MG IN NACL 0.9% (NS) 100ML IVPB (STANDARD INFUSION) IV, 4 OF 4 CYCLES
     Route: 042
     Dates: start: 20170425, end: 20170916
  12. WELLBUTRIN XL [Concomitant]
     Active Substance: BUPROPION HYDROCHLORIDE
     Indication: PRODUCT USED FOR UNKNOWN INDICATION
     Dosage: IN MORNING
     Route: 048
  13. VITAMIN D3 [Concomitant]
     Active Substance: CHOLECALCIFEROL
     Indication: PRODUCT USED FOR UNKNOWN INDICATION
     Route: 048
  14. COMBIVENT RESPIMAT [Concomitant]
     Active Substance: ALBUTEROL SULFATE\IPRATROPIUM BROMIDE
     Indication: DYSPNOEA
  15. VENCLEXTA [Suspect]
     Active Substance: VENETOCLAX
     Indication: MANTLE CELL LYMPHOMA
     Dosage: STARTING PACK, 2 (10MG) TABS DAILY FOR 7 DAYS,
     Route: 048
  16. VENCLEXTA [Suspect]
     Active Substance: VENETOCLAX
     Route: 048
     Dates: end: 20210125
  17. ADRIAMYCIN [Suspect]
     Active Substance: DOXORUBICIN HYDROCHLORIDE
     Indication: MANTLE CELL LYMPHOMA
     Dosage: 3 OF 3 CYCLES
     Route: 042
     Dates: start: 20170425, end: 20170425
  18. CYTOSAR [Suspect]
     Active Substance: CYTARABINE
     Indication: MANTLE CELL LYMPHOMA
     Dosage: 7.2G IN NACL 0.9% (NS) 250ML IVPB, IV 3 OF 3 CYCLES
     Route: 042
     Dates: start: 20170425, end: 20170916
  19. METHOTREXATE. [Suspect]
     Active Substance: METHOTREXATE
     Dosage: 1900MG IN NACL 0.9% (NS) 250ML INFUSION, IV 3 OF 3 CYCLES
     Route: 042
  20. ACALABRUTINIB. [Concomitant]
     Active Substance: ACALABRUTINIB
     Indication: PRODUCT USED FOR UNKNOWN INDICATION
     Route: 048
  21. CLARITIN [Concomitant]
     Active Substance: LORATADINE
     Indication: PRODUCT USED FOR UNKNOWN INDICATION
     Route: 048
  22. SODIUM CHLORIDE. [Concomitant]
     Active Substance: SODIUM CHLORIDE
     Indication: MANTLE CELL LYMPHOMA
     Dosage: 0.9% INJECTION FLUSH?AS NEEDED
     Route: 042

REACTIONS (8)
  - Pancytopenia [Unknown]
  - Haemorrhoids [Unknown]
  - Off label use [Unknown]
  - Subcutaneous abscess [Unknown]
  - Pulmonary mass [Unknown]
  - Bundle branch block right [Unknown]
  - Colon adenoma [Unknown]
  - Sleep apnoea syndrome [Unknown]

NARRATIVE: CASE EVENT DATE: 20171019
